FAERS Safety Report 13719263 (Version 3)
Quarter: 2017Q3

REPORT INFORMATION
  Report Type: Spontaneous
  Country: US (occurrence: US)
  Receive Date: 20170705
  Receipt Date: 20170906
  Transmission Date: 20171127
  Serious: Yes (Other)
  Sender: FDA-Public Use
  Company Number: US-OTSUKA-2017_014565

PATIENT
  Sex: Female

DRUGS (1)
  1. ABILIFY MAINTENA [Suspect]
     Active Substance: ARIPIPRAZOLE
     Indication: SCHIZOPHRENIA
     Dosage: 400 MG, QM
     Route: 030
     Dates: start: 201412

REACTIONS (15)
  - Bruxism [Unknown]
  - Trismus [Not Recovered/Not Resolved]
  - Tremor [Recovered/Resolved]
  - Weight increased [Unknown]
  - Hot flush [Unknown]
  - Hyperhidrosis [Not Recovered/Not Resolved]
  - Pain in extremity [Not Recovered/Not Resolved]
  - Menopause [Unknown]
  - Toothache [Not Recovered/Not Resolved]
  - Muscle twitching [Recovered/Resolved]
  - Drug dose omission [Unknown]
  - Muscle spasms [Not Recovered/Not Resolved]
  - Feeling abnormal [Unknown]
  - Injection site pain [Recovered/Resolved]
  - Abdominal pain upper [Unknown]
